FAERS Safety Report 11444502 (Version 2)
Quarter: 2015Q3

REPORT INFORMATION
  Report Type: Spontaneous
  Country: US (occurrence: US)
  Receive Date: 20150902
  Receipt Date: 20150913
  Transmission Date: 20151125
  Serious: No
  Sender: FDA-Public Use
  Company Number: US-009507513-1509USA000542

PATIENT

DRUGS (1)
  1. FORMOTEROL FUMARATE [Suspect]
     Active Substance: FORMOTEROL FUMARATE
     Indication: ASTHMA
     Route: 048

REACTIONS (3)
  - Choking [Unknown]
  - Product quality issue [Unknown]
  - Asthma [Unknown]
